FAERS Safety Report 15545209 (Version 2)
Quarter: 2019Q3

REPORT INFORMATION
  Report Type: Spontaneous
  Country: US (occurrence: US)
  Receive Date: 20181024
  Receipt Date: 20190726
  Transmission Date: 20191004
  Serious: No
  Sender: FDA-Public Use
  Company Number: US-PFIZER INC-2018410668

PATIENT
  Age: 57 Year
  Sex: Female
  Weight: 61.3 kg

DRUGS (2)
  1. RELPAX [Suspect]
     Active Substance: ELETRIPTAN HYDROBROMIDE
     Indication: MIGRAINE WITH AURA
     Dosage: 40 MG, THREE TO FOUR TIMES A MONTH
     Route: 048
  2. RELPAX [Suspect]
     Active Substance: ELETRIPTAN HYDROBROMIDE
     Dosage: 40 MG, AS NEEDED [1 AT ONSET OF HEADACHE AND REPEAT IN 2 HOURS IF NEEDED]
     Route: 048

REACTIONS (1)
  - Drug ineffective [Unknown]
